FAERS Safety Report 5191654-3 (Version None)
Quarter: 2006Q4

REPORT INFORMATION
  Report Type: 
  Country: None (occurrence: None)
  Receive Date: 20061219
  Receipt Date: 20061206
  Transmission Date: 20070319
  Serious: Yes (Other)
  Sender: FDA-Public Use
  Company Number: 2006152130

PATIENT

DRUGS (1)
  1. SOMAVERT [Suspect]
     Dosage: (10 MG)

REACTIONS (1)
  - RENAL FAILURE ACUTE [None]
